FAERS Safety Report 8990741 (Version 1)
Quarter: 2012Q4

REPORT INFORMATION
  Report Type: Report from Study
  Country: CA (occurrence: CA)
  Receive Date: 20121228
  Receipt Date: 20121228
  Transmission Date: 20130627
  Serious: Yes (Hospitalization, Other)
  Sender: FDA-Public Use
  Company Number: CA-JNJFOC-20121211517

PATIENT
  Age: 54 None
  Sex: Female
  Weight: 74 kg

DRUGS (6)
  1. REMICADE [Suspect]
     Indication: RHEUMATOID ARTHRITIS
     Route: 042
     Dates: start: 2003
  2. SPINAL ANESTHESIA [Concomitant]
     Route: 065
  3. SEDATIVE, NOS [Concomitant]
     Route: 042
  4. HYDROMORPHONE [Concomitant]
     Route: 048
  5. LOVENOX [Concomitant]
     Dosage: 30 days ^post infusion -LD^
     Route: 065
  6. LYRICA [Concomitant]
     Dosage: 14 days ^post infusion^
     Route: 065

REACTIONS (2)
  - Hospitalisation [Recovered/Resolved]
  - Breast mass [Unknown]
